FAERS Safety Report 25710492 (Version 1)
Quarter: 2025Q3

REPORT INFORMATION
  Report Type: Spontaneous
  Country: US (occurrence: None)
  Receive Date: 20250821
  Receipt Date: 20250821
  Transmission Date: 20251021
  Serious: Yes (Hospitalization)
  Sender: FDA-CTU
  Company Number: None

PATIENT
  Sex: Male

DRUGS (11)
  1. TACROLIMUS [Suspect]
     Active Substance: TACROLIMUS
     Indication: Renal transplant
     Route: 048
     Dates: start: 20250509
  2. BACTRIM DS [Concomitant]
     Active Substance: SULFAMETHOXAZOLE\TRIMETHOPRIM
  3. CLOTRIMAZOLE TRO 10MG [Concomitant]
  4. FISH OIL CAP 1000MG [Concomitant]
  5. LISINOP/HCTZ TAB 20-25MG [Concomitant]
  6. MAGNESIUM TAB 250MG [Concomitant]
  7. METOPROL TAR TAB 25MG [Concomitant]
  8. MIRTAZAPINE TAB 15MG [Concomitant]
  9. PREDNISONE [Concomitant]
     Active Substance: PREDNISONE
  10. PRILOSEC OTC TAB 20MG [Concomitant]
  11. RENVELA TAB 800MG [Concomitant]

REACTIONS (1)
  - Cerebrovascular accident [None]
